FAERS Safety Report 5422030-3 (Version None)
Quarter: 2007Q3

REPORT INFORMATION
  Report Type: 
  Country: None (occurrence: None)
  Receive Date: 20070822
  Receipt Date: 20070814
  Transmission Date: 20080115
  Serious: Yes (Hospitalization)
  Sender: FDA-Public Use
  Company Number: NLWYE173014AUG07

PATIENT
  Sex: Female
  Weight: 3.72 kg

DRUGS (3)
  1. EFFEXOR XR [Suspect]
     Indication: DEPRESSION
     Dates: start: 20060101
  2. EMADINE [Concomitant]
  3. FOLIC ACID [Concomitant]
     Dates: start: 20060701

REACTIONS (6)
  - AGITATION NEONATAL [None]
  - DRUG EXPOSURE DURING PREGNANCY [None]
  - DRUG WITHDRAWAL SYNDROME NEONATAL [None]
  - FEEDING DISORDER NEONATAL [None]
  - NEONATAL CANDIDA INFECTION [None]
  - SOMNOLENCE NEONATAL [None]
